FAERS Safety Report 7469974-9 (Version None)
Quarter: 2011Q2

REPORT INFORMATION
  Report Type: 
  Country: None (occurrence: None)
  Receive Date: 20110506
  Receipt Date: 20110506
  Transmission Date: 20111010
  Serious: No
  Sender: FDA-Public Use
  Company Number: None

PATIENT
  Age: 70 Year
  Sex: Male
  Weight: 79.8 kg

DRUGS (1)
  1. COLESTIPOL HYDROCHLORIDE [Suspect]
     Indication: HYPERLIPIDAEMIA
     Dosage: 1 GM TID PO
     Route: 048
     Dates: start: 20090814, end: 20100823

REACTIONS (1)
  - FACE OEDEMA [None]
